FAERS Safety Report 12278677 (Version 2)
Quarter: 2016Q2

REPORT INFORMATION
  Report Type: Spontaneous
  Country: US (occurrence: US)
  Receive Date: 20160418
  Receipt Date: 20160427
  Transmission Date: 20160815
  Serious: No
  Sender: FDA-Public Use
  Company Number: US-PFIZER INC-2016198061

PATIENT
  Age: 18 Year
  Sex: Female
  Weight: 42.63 kg

DRUGS (1)
  1. ADVIL [Suspect]
     Active Substance: IBUPROFEN
     Indication: MENSTRUAL DISCOMFORT
     Dosage: UNK
     Dates: start: 2015

REACTIONS (8)
  - Nausea [Not Recovered/Not Resolved]
  - Contraindicated drug administered [Unknown]
  - Rash [Not Recovered/Not Resolved]
  - Malaise [Unknown]
  - Blood immunoglobulin A increased [Not Recovered/Not Resolved]
  - Constipation [Not Recovered/Not Resolved]
  - Condition aggravated [Not Recovered/Not Resolved]
  - Abdominal pain upper [Not Recovered/Not Resolved]

NARRATIVE: CASE EVENT DATE: 2015
